FAERS Safety Report 12674963 (Version 3)
Quarter: 2016Q3

REPORT INFORMATION
  Report Type: Spontaneous
  Country: FR (occurrence: FR)
  Receive Date: 20160822
  Receipt Date: 20160901
  Transmission Date: 20161109
  Serious: Yes (Death, Other)
  Sender: FDA-Public Use
  Company Number: FR-SA-2016SA152351

PATIENT
  Age: 54 Year
  Sex: Female
  Weight: 68 kg

DRUGS (15)
  1. GLUCOSE [Concomitant]
     Active Substance: DEXTROSE
     Route: 065
  2. PREDNISOLONE. [Concomitant]
     Active Substance: PREDNISOLONE
     Route: 065
  3. ONDANSETRON [Concomitant]
     Active Substance: ONDANSETRON
     Dosage: TWICE DAILY AM MORNING AND ON EVENING
     Route: 065
     Dates: start: 20160407, end: 20160407
  4. METHYLPREDNISOLONE. [Concomitant]
     Active Substance: METHYLPREDNISOLONE
     Dosage: DOSE: 80 MG IN 20 ML OF NACL 0.9%
     Route: 042
  5. ONDANSETRON [Concomitant]
     Active Substance: ONDANSETRON
     Dosage: TWICE DAILY AM MORNING AND ON EVENING
     Route: 065
  6. GRANISETRON [Concomitant]
     Active Substance: GRANISETRON
     Dosage: TWICE DAILY AM MORNING AND ON EVENING
     Route: 065
  7. METHYLPREDNISOLONE. [Concomitant]
     Active Substance: METHYLPREDNISOLONE
     Dosage: DOSE: 80 MG IN 20 ML OF NACL 0.9%
     Route: 042
     Dates: start: 20160412, end: 20160412
  8. TAXOTERE [Suspect]
     Active Substance: DOCETAXEL
     Indication: BREAST CANCER
     Route: 065
     Dates: start: 20160407, end: 20160407
  9. ALL OTHER THERAPEUTIC PRODUCTS [Concomitant]
     Active Substance: UNSPECIFIED INGREDIENT
     Route: 065
     Dates: start: 2016, end: 2016
  10. PREDNISOLONE. [Concomitant]
     Active Substance: PREDNISOLONE
     Route: 065
     Dates: start: 20160406, end: 20160406
  11. PREDNISOLONE. [Concomitant]
     Active Substance: PREDNISOLONE
     Route: 065
     Dates: start: 20160418, end: 20160418
  12. METHYLPREDNISOLONE. [Concomitant]
     Active Substance: METHYLPREDNISOLONE
     Dosage: DOSE: 80 MG IN 20 ML OF NACL 0.9%
     Route: 042
     Dates: start: 20160402, end: 20160402
  13. ENDOXAN [Suspect]
     Active Substance: CYCLOPHOSPHAMIDE
     Route: 065
  14. ONDANSETRON [Concomitant]
     Active Substance: ONDANSETRON
     Dosage: TWICE DAILY AM MORNING AND ON EVENING
     Route: 065
     Dates: start: 20160519, end: 20160519
  15. METOCLOPRAMIDE. [Concomitant]
     Active Substance: METOCLOPRAMIDE
     Dosage: BEFORE MEALS IF NEEDED
     Route: 048

REACTIONS (19)
  - Intestinal perforation [Fatal]
  - Diarrhoea haemorrhagic [Fatal]
  - Bacteraemia [Fatal]
  - Gastrointestinal necrosis [Unknown]
  - Cardiac arrest [Fatal]
  - Septic shock [Fatal]
  - Infectious colitis [Fatal]
  - Fatigue [Fatal]
  - Anaemia [Fatal]
  - Neutropenia [Unknown]
  - Nausea [Fatal]
  - Gastrointestinal disorder [Unknown]
  - Agitation [Unknown]
  - Depression [Unknown]
  - Abdominal pain [Fatal]
  - Vomiting [Fatal]
  - Febrile bone marrow aplasia [Unknown]
  - Hyperventilation [Fatal]
  - Hyperaesthesia [Fatal]

NARRATIVE: CASE EVENT DATE: 20160528
